FAERS Safety Report 25938826 (Version 1)
Quarter: 2025Q4

REPORT INFORMATION
  Report Type: Report from Study
  Country: US (occurrence: US)
  Receive Date: 20251019
  Receipt Date: 20251019
  Transmission Date: 20260118
  Serious: Yes (Other)
  Sender: JOHNSON AND JOHNSON
  Company Number: US-JNJFOC-20251024295

PATIENT
  Age: 71 Year
  Sex: Male
  Weight: 75.75 kg

DRUGS (1)
  1. TECVAYLI [Suspect]
     Active Substance: TECLISTAMAB-CQYV
     Indication: Plasma cell myeloma
     Dosage: LAST DOSE ON 16-SEP-2025
     Route: 065
     Dates: start: 20241202

REACTIONS (1)
  - Cytokine release syndrome [Recovered/Resolved]
